FAERS Safety Report 8175201 (Version 7)
Quarter: 2013Q1

REPORT INFORMATION
  Report Type: Report from Study
  Country: JP (occurrence: JP)
  Receive Date: 20111011
  Receipt Date: 20130205
  Transmission Date: 20140127
  Serious: Yes (Death, Hospitalization)
  Sender: FDA-Public Use
  Company Number: JP-EISAI INC-E7389-01597-CLI-JP

PATIENT
  Age: 60 Year
  Sex: Female
  Weight: 62 kg

DRUGS (20)
  1. HALAVEN [Suspect]
     Indication: BREAST CANCER RECURRENT
     Route: 041
     Dates: start: 20110803, end: 20110922
  2. HALAVEN [Suspect]
     Indication: METASTASES TO LYMPH NODES
  3. HALAVEN [Suspect]
     Indication: METASTASES TO LIVER
  4. HALAVEN [Suspect]
     Indication: METASTASES TO GALLBLADDER
  5. HALAVEN [Suspect]
     Indication: METASTASES TO PERITONEUM
  6. FENTOS [Concomitant]
  7. OXINORM [Concomitant]
     Route: 048
  8. FAMOTIDINE [Concomitant]
     Indication: PROPHYLAXIS
     Route: 048
  9. CELECOX [Concomitant]
     Route: 048
  10. LENDORMIN [Concomitant]
     Route: 048
  11. NAUZELIN [Concomitant]
     Indication: PROPHYLAXIS
     Route: 048
  12. MERISLON [Concomitant]
     Indication: PROPHYLAXIS
     Route: 048
  13. GOREISAN [Concomitant]
     Route: 048
  14. LASIX [Concomitant]
     Route: 048
  15. PRIMPERAN [Concomitant]
     Indication: PROPHYLAXIS
     Route: 048
  16. PARIET [Concomitant]
     Indication: PROPHYLAXIS
     Route: 048
  17. LIVACT [Concomitant]
     Route: 048
  18. KAKKON-TO [Concomitant]
     Indication: PROPHYLAXIS
     Route: 048
  19. CRAVIT [Concomitant]
     Indication: PROPHYLAXIS
     Route: 048
  20. VOLTAREN [Concomitant]
     Indication: PROPHYLAXIS

REACTIONS (2)
  - Pulmonary haemorrhage [Fatal]
  - Sepsis [Not Recovered/Not Resolved]
